FAERS Safety Report 15305350 (Version 1)
Quarter: 2018Q3

REPORT INFORMATION
  Report Type: Spontaneous
  Country: US (occurrence: US)
  Receive Date: 20180810
  Receipt Date: 20180810
  Transmission Date: 20181010
  Serious: Yes (Life-Threatening, Hospitalization, Disabling)
  Sender: FDA-Public Use
  Company Number: None

PATIENT
  Age: 47 Year
  Sex: Female
  Weight: 72 kg

DRUGS (1)
  1. CLONAZEPAM. [Suspect]
     Active Substance: CLONAZEPAM
     Indication: ANXIETY
     Dates: start: 20160801, end: 20161220

REACTIONS (6)
  - Derealisation [None]
  - Anger [None]
  - Suicidal ideation [None]
  - Drug dependence [None]
  - Drug ineffective [None]
  - Homicidal ideation [None]

NARRATIVE: CASE EVENT DATE: 20160801
